FAERS Safety Report 6905212-0 (Version None)
Quarter: 2010Q3

REPORT INFORMATION
  Report Type: 
  Country: None (occurrence: None)
  Receive Date: 20100804
  Receipt Date: 20100723
  Transmission Date: 20110219
  Serious: Yes (Other)
  Sender: FDA-Public Use
  Company Number: US-JNJFOC-20100607179

PATIENT
  Sex: Female
  Weight: 73.94 kg

DRUGS (4)
  1. LEVAQUIN [Suspect]
     Indication: DIVERTICULITIS
     Route: 048
  2. LEVAQUIN [Suspect]
     Route: 048
  3. LEVAQUIN [Suspect]
     Route: 048
  4. LEVAQUIN [Suspect]
     Route: 048

REACTIONS (5)
  - BURSITIS [None]
  - LIGAMENT RUPTURE [None]
  - OSTEOARTHRITIS [None]
  - ROTATOR CUFF SYNDROME [None]
  - TENDON DISORDER [None]
